FAERS Safety Report 9945416 (Version 1)
Quarter: 2014Q1

REPORT INFORMATION
  Report Type: Report from Study
  Country: US (occurrence: US)
  Receive Date: 20140303
  Receipt Date: 20140303
  Transmission Date: 20141002
  Serious: No
  Sender: FDA-Public Use
  Company Number: US-ABBVIE-13P-163-1049457-00

PATIENT
  Age: 36 Year
  Sex: Female

DRUGS (3)
  1. HUMIRA [Suspect]
     Indication: CROHN^S DISEASE
     Dates: start: 20121213
  2. XYZAL [Concomitant]
     Indication: HYPERSENSITIVITY
     Dosage: AS NEEDED
  3. SYNTHROID [Concomitant]
     Indication: AUTOIMMUNE THYROIDITIS
     Dosage: 1/2 A TAB ON SUNDAYS

REACTIONS (2)
  - Arthralgia [Not Recovered/Not Resolved]
  - Device malfunction [Unknown]
